FAERS Safety Report 5135211-3 (Version None)
Quarter: 2006Q4

REPORT INFORMATION
  Report Type: 
  Country: None (occurrence: None)
  Receive Date: 20061026
  Receipt Date: 20061016
  Transmission Date: 20070319
  Serious: Yes (Hospitalization, Other)
  Sender: FDA-Public Use
  Company Number: US-JNJFOC-20061005168

PATIENT
  Age: 19 Year
  Sex: Male

DRUGS (5)
  1. FENTANYL [Suspect]
     Indication: INTENTIONAL DRUG MISUSE
     Route: 048
  2. AMPHETAMINE [Suspect]
     Indication: DRUG USE FOR UNKNOWN INDICATION
     Route: 048
  3. METHADONE [Suspect]
     Indication: DRUG USE FOR UNKNOWN INDICATION
     Route: 055
  4. COCAINE [Concomitant]
  5. MARIJUANA [Concomitant]

REACTIONS (7)
  - BRADYCARDIA [None]
  - COMA [None]
  - HYPOTENSION [None]
  - INTENTIONAL DRUG MISUSE [None]
  - MIOSIS [None]
  - PULSE ABSENT [None]
  - RESPIRATORY ARREST [None]
